FAERS Safety Report 10898422 (Version 1)
Quarter: 2015Q1

REPORT INFORMATION
  Report Type: Spontaneous
  Country: US (occurrence: None)
  Receive Date: 20150303
  Receipt Date: 20150303
  Transmission Date: 20150721
  Serious: Yes (Hospitalization)
  Sender: FDA-Public Use
  Company Number: None

PATIENT
  Age: 83 Year
  Sex: Male
  Weight: 84.1 kg

DRUGS (2)
  1. RIVAROXABAN [Suspect]
     Active Substance: RIVAROXABAN
     Dosage: MG
     Route: 048
     Dates: start: 20140707, end: 20150131
  2. CLOPIDOGREL [Suspect]
     Active Substance: CLOPIDOGREL BISULFATE
     Route: 048
     Dates: start: 20131115, end: 20150131

REACTIONS (5)
  - Gastric haemorrhage [None]
  - Creatinine renal clearance decreased [None]
  - Asthenia [None]
  - Dyspnoea [None]
  - International normalised ratio increased [None]

NARRATIVE: CASE EVENT DATE: 20150129
